FAERS Safety Report 22186494 (Version 1)
Quarter: 2023Q2

REPORT INFORMATION
  Report Type: Spontaneous
  Country: US (occurrence: None)
  Receive Date: 20230407
  Receipt Date: 20230407
  Transmission Date: 20230721
  Serious: Yes (Other)
  Sender: FDA-Public Use
  Company Number: None

PATIENT
  Age: 54 Year
  Sex: Female
  Weight: 72 kg

DRUGS (5)
  1. ACETAMINOPHEN\HYDROCODONE [Suspect]
     Active Substance: ACETAMINOPHEN\HYDROCODONE
     Indication: Back pain
     Dosage: FREQUENCY : AS NEEDED;?
     Route: 048
     Dates: start: 20221214, end: 20221215
  2. HYDROCODONE [Concomitant]
     Active Substance: HYDROCODONE
  3. LEVOTHYROXINE [Concomitant]
     Active Substance: LEVOTHYROXINE
  4. PROPRANOLOL HYDROCHLORIDE [Concomitant]
     Active Substance: PROPRANOLOL HYDROCHLORIDE
  5. CALCIUM [Concomitant]
     Active Substance: CALCIUM

REACTIONS (10)
  - Pharyngeal swelling [None]
  - Nausea [None]
  - Pruritus [None]
  - Dizziness [None]
  - Asthenia [None]
  - Malaise [None]
  - Illness [None]
  - Product substitution issue [None]
  - Product availability issue [None]
  - Therapy interrupted [None]

NARRATIVE: CASE EVENT DATE: 20221214
